FAERS Safety Report 20972789 (Version 1)
Quarter: 2022Q2

REPORT INFORMATION
  Report Type: Spontaneous
  Country: CN (occurrence: CN)
  Receive Date: 20220617
  Receipt Date: 20220617
  Transmission Date: 20220721
  Serious: Yes (Life-Threatening, Hospitalization, Other)
  Sender: FDA-Public Use
  Company Number: None

PATIENT
  Age: 6 Year
  Sex: Female
  Weight: 19.5 kg

DRUGS (12)
  1. CYCLOPHOSPHAMIDE [Suspect]
     Active Substance: CYCLOPHOSPHAMIDE
     Indication: Glioblastoma
     Dosage: UNK, QD,CYCLOPHOSPHAMIDE  + 0.9% SODIUM CHLORIDE, CYCLE 1
     Route: 041
  2. CYCLOPHOSPHAMIDE [Suspect]
     Active Substance: CYCLOPHOSPHAMIDE
     Dosage: 0.8 G, QD,CYCLOPHOSPHAMIDE (0.8MG) + 0.9% SODIUM CHLORIDE (500ML) D1, CYCLE 2
     Route: 041
     Dates: start: 20220520, end: 20220520
  3. SODIUM CHLORIDE [Suspect]
     Active Substance: SODIUM CHLORIDE
     Indication: Medication dilution
     Dosage: UNK, QD,CYCLOPHOSPHAMIDE + 0.9% SODIUM CHLORIDE,CYCLE 1
     Route: 041
  4. SODIUM CHLORIDE [Suspect]
     Active Substance: SODIUM CHLORIDE
     Dosage: 500 ML, QD, CYCLOPHOSPHAMIDE (0.8MG) + 0.9% SODIUM CHLORIDE (500ML) D1,CYCLE 2
     Route: 041
     Dates: start: 20220520, end: 20220520
  5. DEXTROSE [Suspect]
     Active Substance: DEXTROSE
     Indication: Medication dilution
     Dosage: UNK, QD, CARBOPLATIN + 5% GLUCOSE,CYCLE 1
     Route: 041
  6. DEXTROSE [Suspect]
     Active Substance: DEXTROSE
     Dosage: UNK, QD, DOXORUBICIN + 5% GLUCOSE,CYCLE 1
     Route: 041
  7. DEXTROSE [Suspect]
     Active Substance: DEXTROSE
     Dosage: 200 ML, QD, CARBOPLATIN (0.448G) + 5% GLUCOSE (500ML),CYCLE 2
     Route: 041
     Dates: start: 20220520, end: 20220520
  8. DEXTROSE [Suspect]
     Active Substance: DEXTROSE
     Dosage: 500 ML, QD, DOXORUBICIN (24MG) + 5% GLUCOSE(200ML),CYCLE 2
     Route: 041
     Dates: start: 20220520, end: 20220520
  9. DOXORUBICIN HYDROCHLORIDE [Suspect]
     Active Substance: DOXORUBICIN HYDROCHLORIDE
     Indication: Glioblastoma
     Dosage: UNK, QD,DOXORUBICIN+ 5% GLUCOSE,CYCLE 1
     Route: 041
  10. DOXORUBICIN HYDROCHLORIDE [Suspect]
     Active Substance: DOXORUBICIN HYDROCHLORIDE
     Dosage: 24 MG, QD,DOXORUBICIN(24MG) + 5% GLUCOSE(200ML) D1,CYCLE 2
     Route: 041
     Dates: start: 20220520, end: 20220520
  11. CARBOPLATIN [Suspect]
     Active Substance: CARBOPLATIN
     Indication: Glioblastoma
     Dosage: UNK, QD,CARBOPLATIN + 5% GLUCOSE,CYCLE 1
     Route: 041
  12. CARBOPLATIN [Suspect]
     Active Substance: CARBOPLATIN
     Dosage: 0.448 G, QD, CARBOPLATIN (0.448G) + 5% GLUCOSE (500ML),D1,CYCLE 2
     Route: 041
     Dates: start: 20220520, end: 20220520

REACTIONS (4)
  - Pallor [Unknown]
  - Myelosuppression [Recovering/Resolving]
  - White blood cell count decreased [Recovering/Resolving]
  - Platelet count decreased [Recovering/Resolving]

NARRATIVE: CASE EVENT DATE: 20220601
